FAERS Safety Report 24229197 (Version 2)
Quarter: 2024Q3

REPORT INFORMATION
  Report Type: Report from Study
  Country: US (occurrence: US)
  Receive Date: 20240820
  Receipt Date: 20240927
  Transmission Date: 20241017
  Serious: Yes (Hospitalization, Other)
  Sender: ABBVIE
  Company Number: US-ABBVIE-5882092

PATIENT
  Sex: Male
  Weight: 77 kg

DRUGS (1)
  1. RINVOQ [Suspect]
     Active Substance: UPADACITINIB
     Indication: Eczema
     Dosage: FORM STRENGTH:15 MILLIGRAM
     Route: 048
     Dates: start: 202306, end: 202406

REACTIONS (5)
  - Coronary artery disease [Recovering/Resolving]
  - Blood cholesterol increased [Unknown]
  - Coronary artery occlusion [Recovering/Resolving]
  - Blood triglycerides increased [Unknown]
  - Arteriosclerosis [Recovering/Resolving]

NARRATIVE: CASE EVENT DATE: 20240101
